FAERS Safety Report 4727025-0 (Version None)
Quarter: 2005Q3

REPORT INFORMATION
  Report Type: 
  Country: None (occurrence: None)
  Receive Date: 20050726
  Receipt Date: 20050726
  Transmission Date: 20060218
  Serious: Yes (Other)
  Sender: FDA-Public Use
  Company Number: None

PATIENT
  Age: 18 Year
  Sex: Female
  Weight: 49.8957 kg

DRUGS (2)
  1. DIFLUCAN [Suspect]
     Indication: VULVOVAGINAL MYCOTIC INFECTION
     Dosage: 200 MG ONCE ORAL
     Route: 048
     Dates: start: 20050714, end: 20050714
  2. MENOMUNE VACCINE [Concomitant]

REACTIONS (1)
  - ALOPECIA [None]
